FAERS Safety Report 4492650-1 (Version None)
Quarter: 2004Q4

REPORT INFORMATION
  Report Type: 
  Country: None (occurrence: None)
  Receive Date: 20041029
  Receipt Date: 20041020
  Transmission Date: 20050328
  Serious: Yes (Life-Threatening, Other)
  Sender: FDA-Public Use
  Company Number: 2002090230GB

PATIENT
  Age: 69 Year
  Sex: Female
  Weight: 73 kg

DRUGS (4)
  1. ESTRING [Suspect]
     Indication: VAGINITIS ATROPHIC
     Dosage: 7.5 UG, 3-4 TIMES MONTHLY, VAGINAL
     Route: 067
     Dates: start: 20000501, end: 20020123
  2. THYROXIN (LEVOTHYROXINE SODIUM) [Concomitant]
  3. SERETIDE MITE (FLUTICASONE PROPIONATE) [Concomitant]
  4. INDAPAMIDE [Concomitant]

REACTIONS (2)
  - PULMONARY EMBOLISM [None]
  - WHEEZING [None]
